FAERS Safety Report 6933688-1 (Version None)
Quarter: 2010Q3

REPORT INFORMATION
  Report Type: 
  Country: None (occurrence: None)
  Receive Date: 20100817
  Receipt Date: 20100730
  Transmission Date: 20110219
  Serious: Yes (Other)
  Sender: FDA-Public Use
  Company Number: GB-ACCORD-005790

PATIENT
  Age: 57 Year
  Sex: Male

DRUGS (4)
  1. MYCOPHENOLATE MOFETIL [Suspect]
     Indication: VASCULITIS
     Dosage: 500.00-MG-1.00PE / ORAL
     Route: 048
     Dates: start: 20091204
  2. BENDROFLUAZIDE (BENDROFLUAZIDE) [Concomitant]
  3. TRIMETHOPRIM + SULFAMETHOXAZOLE [Concomitant]
  4. PREDNISOLONE [Concomitant]

REACTIONS (2)
  - ERECTILE DYSFUNCTION [None]
  - OFF LABEL USE [None]
